FAERS Safety Report 5371447-4 (Version None)
Quarter: 2007Q2

REPORT INFORMATION
  Report Type: 
  Country: None (occurrence: None)
  Receive Date: 20070615
  Receipt Date: 20060601
  Transmission Date: 20071010
  Serious: Yes (Hospitalization)
  Sender: FDA-Public Use
  Company Number: 200615017US

PATIENT
  Age: 68 Year
  Sex: Female

DRUGS (10)
  1. LANTUS [Suspect]
     Indication: DIABETES MELLITUS NON-INSULIN-DEPENDENT
     Dosage: 40 U/DAY
     Dates: start: 20060101
  2. LANTUS [Suspect]
     Indication: DIABETES MELLITUS NON-INSULIN-DEPENDENT
     Dosage: 30 U
     Dates: start: 20060524
  3. OPTICLIK [Suspect]
     Dates: start: 20060524
  4. STEROIDS NOS [Suspect]
     Indication: ARTHRITIS
  5. NAPROXEN (NAPROSYN /00256201/) [Concomitant]
  6. ENALAPRILAT (VASOTEC /00935901/) [Concomitant]
  7. IRON [Concomitant]
  8. CALCIUM CHLORIDE [Concomitant]
  9. ATORVASTATIN CALCIUM (LIPITOR) [Concomitant]
  10. TOLTERODINE TARTRATE [Concomitant]

REACTIONS (2)
  - BLOOD GLUCOSE INCREASED [None]
  - HYPERGLYCAEMIA [None]
